FAERS Safety Report 5124527-2 (Version None)
Quarter: 2006Q3

REPORT INFORMATION
  Report Type: 
  Country: None (occurrence: None)
  Receive Date: 20060821
  Receipt Date: 20060714
  Transmission Date: 20061208
  Serious: No
  Sender: FDA-Public Use
  Company Number: TPA2006A00774

PATIENT
  Age: 44 Year
  Sex: Male

DRUGS (6)
  1. ROZEREM [Suspect]
     Indication: INITIAL INSOMNIA
     Dosage: 8 MG PER ORAL
     Route: 048
     Dates: start: 20060119, end: 20060406
  2. ABILIFY (ARIPIPRAZOLE) (10 MILLIGRAM) [Concomitant]
  3. PROVIGIL [Concomitant]
  4. STRATTERA [Concomitant]
  5. WELLBUTRIN XL [Concomitant]
  6. KLONOPIN (CLONAZEPAM) (0.5 MILLIGRAM TABLETS) [Concomitant]

REACTIONS (1)
  - PARAESTHESIA [None]
